FAERS Safety Report 24107091 (Version 2)
Quarter: 2024Q3

REPORT INFORMATION
  Report Type: Spontaneous
  Country: US (occurrence: US)
  Receive Date: 20240718
  Receipt Date: 20240723
  Transmission Date: 20241017
  Serious: No
  Sender: APOTEX
  Company Number: US-APOTEX-2024AP007944

PATIENT
  Sex: Male

DRUGS (1)
  1. MYCOPHENOLIC ACID [Suspect]
     Active Substance: MYCOPHENOLIC ACID
     Indication: Systemic lupus erythematosus
     Dosage: 1 DOSAGE FORM, BID
     Route: 065
     Dates: start: 20240425

REACTIONS (2)
  - Gastrointestinal disorder [Unknown]
  - Depression [Unknown]

NARRATIVE: CASE EVENT DATE: 20240101
